FAERS Safety Report 8962697 (Version 1)
Quarter: 2012Q4

REPORT INFORMATION
  Report Type: Report from Study
  Country: US (occurrence: US)
  Receive Date: 20121213
  Receipt Date: 20121213
  Transmission Date: 20130627
  Serious: Yes (Death, Hospitalization)
  Sender: FDA-Public Use
  Company Number: US-009507513-1212USA004529

PATIENT
  Age: 60 Year
  Sex: Female
  Weight: 50.3 kg

DRUGS (16)
  1. TEMODAR [Suspect]
     Indication: GLIOBLASTOMA
     Dosage: 220 mg, 150 mg/m2
     Route: 048
     Dates: start: 20110211, end: 20110215
  2. BEVACIZUMAB [Suspect]
     Indication: GLIOBLASTOMA
     Dosage: 503 mg, once in every 2 weeks
     Route: 042
     Dates: start: 20110211
  3. BEVACIZUMAB [Suspect]
     Dosage: 503 mg, once in every 2 weeks
     Route: 042
     Dates: start: 20110225
  4. TOPOTECAN [Suspect]
     Indication: GLIOBLASTOMA
     Dosage: 2.25 mg, UNK
     Dates: start: 20110212, end: 20110216
  5. ROXICET [Concomitant]
     Dosage: 5/325 mg, q6h, prn
     Route: 048
  6. ZOFRAN [Concomitant]
     Dosage: 8 mg, q8h, as needed
  7. KEPPRA [Concomitant]
     Dosage: 500 mg, bid
  8. OMEPRAZOLE [Concomitant]
     Dosage: 40 mg, UNK
  9. DECADRON (DEXAMETHASONE) [Concomitant]
     Dosage: 2 mg, bid
  10. SYNTHROID [Concomitant]
     Dosage: 100 Microgram, UNK
  11. CALCIUM (UNSPECIFIED) [Concomitant]
     Dosage: UNK UNK, bid
  12. KLOR-CON [Concomitant]
     Dosage: 8 mEq, UNK
  13. PHENERGAN (PROMETHAZINE HYDROCHLORIDE) [Concomitant]
     Dosage: 12.5 mg, q6h, prn
  14. CIPRO [Concomitant]
     Dosage: 500 mg, bid
  15. LASIX (FUROSEMIDE) [Concomitant]
  16. VITAMINS (UNSPECIFIED) [Concomitant]

REACTIONS (4)
  - Haemoglobin abnormal [Fatal]
  - Thrombocytopenia [Fatal]
  - Neutropenia [Fatal]
  - Infection [Fatal]
